FAERS Safety Report 7197770-9 (Version None)
Quarter: 2010Q4

REPORT INFORMATION
  Report Type: 
  Country: None (occurrence: None)
  Receive Date: 20101227
  Receipt Date: 20101220
  Transmission Date: 20110411
  Serious: Yes (Death)
  Sender: FDA-Public Use
  Company Number: US-SANOFI-AVENTIS-2010SA077184

PATIENT
  Age: 55 Year
  Sex: Female

DRUGS (2)
  1. LANTUS [Suspect]
     Route: 058
     Dates: end: 20100904
  2. APIDRA [Suspect]
     Route: 058
     Dates: end: 20100904

REACTIONS (1)
  - CARDIO-RESPIRATORY ARREST [None]
